FAERS Safety Report 4594765-6 (Version None)
Quarter: 2005Q1

REPORT INFORMATION
  Report Type: 
  Country: None (occurrence: None)
  Receive Date: 20050223
  Receipt Date: 20050210
  Transmission Date: 20050727
  Serious: Yes (Disabling)
  Sender: FDA-Public Use
  Company Number: S05-USA-00801-02

PATIENT
  Age: 0 Day

DRUGS (3)
  1. CERVIDIL [Suspect]
     Indication: LABOUR INDUCTION
     Dates: start: 19980111, end: 19980111
  2. PITOCIN [Suspect]
     Indication: LABOUR INDUCTION
     Dates: start: 19980111, end: 19980111
  3. EPIDURAL [Concomitant]

REACTIONS (2)
  - CEREBRAL PALSY [None]
  - DRUG EXPOSURE DURING PREGNANCY [None]
